FAERS Safety Report 22693891 (Version 8)
Quarter: 2024Q1

REPORT INFORMATION
  Report Type: Spontaneous
  Country: CZ (occurrence: CZ)
  Receive Date: 20230711
  Receipt Date: 20240129
  Transmission Date: 20240410
  Serious: Yes (Other)
  Sender: FDA-Public Use
  Company Number: CZ-MYLANLABS-2023M1072144

PATIENT
  Age: 10 Year
  Sex: Female
  Weight: 44 kg

DRUGS (4)
  1. CLARITHROMYCIN [Interacting]
     Active Substance: CLARITHROMYCIN
     Indication: Otitis media acute
     Dosage: 250 MILLIGRAM, QD
     Route: 048
  2. CLARITHROMYCIN [Interacting]
     Active Substance: CLARITHROMYCIN
     Indication: Otitis media
  3. CETIRIZINE [Interacting]
     Active Substance: CETIRIZINE HYDROCHLORIDE
     Indication: Otitis media acute
     Dosage: 5 MILLIGRAM, QD
     Route: 048
  4. CETIRIZINE [Interacting]
     Active Substance: CETIRIZINE HYDROCHLORIDE
     Indication: Otitis media

REACTIONS (3)
  - Hallucinations, mixed [Unknown]
  - Drug interaction [Unknown]
  - Off label use [Unknown]
